FAERS Safety Report 9425130 (Version 1)
Quarter: 2013Q3

REPORT INFORMATION
  Report Type: Spontaneous
  Country: IL (occurrence: IL)
  Receive Date: 20130729
  Receipt Date: 20130729
  Transmission Date: 20140515
  Serious: Yes (Hospitalization, Other)
  Sender: FDA-Public Use
  Company Number: IL-PFIZER INC-2013217527

PATIENT
  Age: 8 Year
  Sex: Female

DRUGS (4)
  1. ADVIL [Suspect]
     Indication: VOMITING
     Dosage: UNK
     Route: 048
  2. ADVIL [Suspect]
     Indication: ABDOMINAL PAIN
  3. NUROFEN [Suspect]
     Indication: VOMITING
     Dosage: UNK
  4. NUROFEN [Suspect]
     Indication: ABDOMINAL PAIN

REACTIONS (2)
  - Renal failure [Recovered/Resolved]
  - Dehydration [Recovered/Resolved]
